FAERS Safety Report 8493156-5 (Version None)
Quarter: 2012Q3

REPORT INFORMATION
  Report Type: 
  Country: None (occurrence: None)
  Receive Date: 20120706
  Receipt Date: 20120625
  Transmission Date: 20120928
  Serious: Yes (Other)
  Sender: FDA-Public Use
  Company Number: GB-JHP PHARMACEUTICALS, LLC-JHP201200344

PATIENT
  Age: 52 Year
  Sex: Male

DRUGS (10)
  1. TESTOSTERONE [Concomitant]
  2. OXYCONTIN [Concomitant]
  3. AMITRIPTYLINE HCL [Concomitant]
  4. ACETAMINOPHEN [Concomitant]
  5. MOVICOL SACHETS [Concomitant]
  6. TRIZIVIR [Concomitant]
  7. NEVIRAPINE [Concomitant]
  8. RAMIPRIL [Concomitant]
  9. OXYCODONE HCL [Concomitant]
  10. KETALAR [Suspect]
     Indication: ANALGESIC THERAPY
     Dosage: 60 MG, DAILY
     Dates: start: 20060201, end: 20090101

REACTIONS (2)
  - CYSTITIS NONINFECTIVE [None]
  - LIVER FUNCTION TEST ABNORMAL [None]
